FAERS Safety Report 12573593 (Version 4)
Quarter: 2017Q2

REPORT INFORMATION
  Report Type: Report from Study
  Country: JP (occurrence: JP)
  Receive Date: 20160720
  Receipt Date: 20170629
  Transmission Date: 20170830
  Serious: Yes (Other)
  Sender: FDA-Public Use
  Company Number: PHJP2016JP019427

PATIENT
  Sex: Male

DRUGS (3)
  1. ZYKADIA [Suspect]
     Active Substance: CERITINIB
     Indication: LUNG NEOPLASM MALIGNANT
     Dosage: 750 MG, QD
     Route: 048
     Dates: start: 20160701, end: 201607
  2. ZYKADIA [Suspect]
     Active Substance: CERITINIB
     Dosage: 750 MG, QD
     Route: 048
     Dates: end: 20160829
  3. ZYKADIA [Suspect]
     Active Substance: CERITINIB
     Dosage: 750 MG, QD
     Route: 048
     Dates: end: 201705

REACTIONS (4)
  - Diarrhoea [Recovered/Resolved]
  - Metastases to bone [Not Recovered/Not Resolved]
  - Cellulitis [Not Recovered/Not Resolved]
  - Liver function test increased [Not Recovered/Not Resolved]

NARRATIVE: CASE EVENT DATE: 201607
